APPROVED DRUG PRODUCT: ZILBRYSQ
Active Ingredient: ZILUCOPLAN SODIUM
Strength: EQ 23MG BASE/0.574ML (EQ 23MG BASE/0.574ML)
Dosage Form/Route: SOLUTION;SUBCUTANEOUS
Application: N216834 | Product #002
Applicant: UCB INC
Approved: Oct 17, 2023 | RLD: Yes | RS: Yes | Type: RX

PATENTS:
Patent 11752190 | Expires: Jun 12, 2035
Patent 11014965 | Expires: Jun 12, 2035
Patent 10435438 | Expires: Jun 12, 2035
Patent 10208089 | Expires: Jun 12, 2035
Patent 10106579 | Expires: Jun 12, 2035
Patent 10835574 | Expires: Jun 12, 2035
Patent 11535650 | Expires: Jun 12, 2035
Patent 10562934 | Expires: Jun 12, 2035
Patent 11965040 | Expires: Jun 12, 2035

EXCLUSIVITY:
Code: NCE | Date: Oct 17, 2028
Code: ODE-446 | Date: Oct 17, 2030